FAERS Safety Report 25574079 (Version 2)
Quarter: 2025Q3

REPORT INFORMATION
  Report Type: Spontaneous
  Country: EU (occurrence: EU)
  Receive Date: 20250717
  Receipt Date: 20250730
  Transmission Date: 20251020
  Serious: Yes (Congenital Anomaly, Other)
  Sender: MYLAN
  Company Number: EU-MYLANLABS-2025M1058345

PATIENT

DRUGS (12)
  1. ACETAMINOPHEN [Suspect]
     Active Substance: ACETAMINOPHEN
     Indication: Pain
  2. ACETAMINOPHEN [Suspect]
     Active Substance: ACETAMINOPHEN
  3. ACETAMINOPHEN [Suspect]
     Active Substance: ACETAMINOPHEN
     Route: 064
  4. ACETAMINOPHEN [Suspect]
     Active Substance: ACETAMINOPHEN
     Route: 064
  5. ACETAMINOPHEN [Suspect]
     Active Substance: ACETAMINOPHEN
  6. ACETAMINOPHEN [Suspect]
     Active Substance: ACETAMINOPHEN
  7. ACETAMINOPHEN [Suspect]
     Active Substance: ACETAMINOPHEN
     Route: 064
  8. ACETAMINOPHEN [Suspect]
     Active Substance: ACETAMINOPHEN
     Route: 064
  9. PENTAZOCINE [Suspect]
     Active Substance: PENTAZOCINE
     Indication: Product used for unknown indication
  10. PENTAZOCINE [Suspect]
     Active Substance: PENTAZOCINE
     Route: 065
  11. PENTAZOCINE [Suspect]
     Active Substance: PENTAZOCINE
     Route: 065
  12. PENTAZOCINE [Suspect]
     Active Substance: PENTAZOCINE

REACTIONS (4)
  - Embryo-foetal toxicity [Recovered/Resolved]
  - Ductus arteriosus stenosis foetal [Recovered/Resolved]
  - Neonatal cardiac failure [Recovered/Resolved]
  - Foetal exposure during pregnancy [Recovered/Resolved]
